FAERS Safety Report 16780656 (Version 1)
Quarter: 2019Q3

REPORT INFORMATION
  Report Type: Spontaneous
  Country: US (occurrence: US)
  Receive Date: 20190717
  Receipt Date: 20190717
  Transmission Date: 20191005
  Serious: Yes (Hospitalization)
  Sender: FDA-Public Use
  Company Number: None

PATIENT
  Age: 56 Year

DRUGS (7)
  1. THYROID [Concomitant]
     Active Substance: LEVOTHYROXINE\LIOTHYRONINE
  2. GABAPENTIN. [Concomitant]
     Active Substance: GABAPENTIN
  3. TOPIRAMATE. [Concomitant]
     Active Substance: TOPIRAMATE
  4. CIMZIA [Suspect]
     Active Substance: CERTOLIZUMAB PEGOL
     Indication: RHEUMATOID ARTHRITIS
     Dosage: ?          OTHER FREQUENCY:EVERY 14 DAYS;?
     Route: 058
     Dates: start: 201808, end: 201906
  5. PANTOPRAZOLE [Concomitant]
     Active Substance: PANTOPRAZOLE
  6. TIZANIDINE. [Concomitant]
     Active Substance: TIZANIDINE
  7. MELOXICAM. [Concomitant]
     Active Substance: MELOXICAM

REACTIONS (4)
  - Pain [None]
  - Peripheral swelling [None]
  - Joint fluid drainage [None]
  - Urinary tract infection [None]

NARRATIVE: CASE EVENT DATE: 20190716
